FAERS Safety Report 8951366 (Version 1)
Quarter: 2012Q4

REPORT INFORMATION
  Report Type: 
  Country: US (occurrence: US)
  Receive Date: 20121207
  Receipt Date: 20121207
  Transmission Date: 20130627
  Serious: Yes (Hospitalization, Other)
  Sender: FDA-Public Use
  Company Number: US-JNJFOC-20121115094

PATIENT

DRUGS (7)
  1. DOXORUBICIN [Suspect]
     Indication: EWING^S SARCOMA
     Dosage: regimen A- 21 days;regiman B-14 days; 37.5 mg/m2 on days 1 and 2 of each cycle
     Route: 042
  2. VINCRISTINE [Suspect]
     Indication: EWING^S SARCOMA
     Dosage: regimen A- 21 days;regiman B-14 days; on day 1 of each cycle
     Route: 065
  3. CYCLOPHOSPHAMIDE [Suspect]
     Indication: EWING^S SARCOMA
     Dosage: regimen A- 21 days;regiman B-14 days; on day 1 of each cycle
     Route: 065
  4. IFOSFAMIDE [Suspect]
     Indication: EWING^S SARCOMA
     Dosage: regimen A- 21 days;regiman B-14 days;1800 mg/m2 on days 1 through 5 of each cycle
     Route: 065
  5. ETOPOSIDE [Suspect]
     Indication: EWING^S SARCOMA
     Dosage: regimen A- 21 days; regiman B-14 days; 100 mg/m2 on days 1 through 5 of each cycle
     Route: 065
  6. RADIATION THERAPY [Suspect]
     Indication: EWING^S SARCOMA
     Route: 065
  7. FILGRASTIM [Concomitant]
     Dosage: maximum - 300 mg
     Route: 065

REACTIONS (18)
  - Acute myeloid leukaemia [Unknown]
  - Osteosarcoma [Unknown]
  - Lymphoma [Unknown]
  - Wound infection [Unknown]
  - Febrile neutropenia [Unknown]
  - Neutropenic infection [Unknown]
  - Infection [Unknown]
  - Device related infection [Unknown]
  - Colitis [Unknown]
  - Caecitis [Unknown]
  - Decreased appetite [Unknown]
  - Nausea [Unknown]
  - Vomiting [Unknown]
  - Stomatitis [Unknown]
  - Pharyngitis [Unknown]
  - Hypokalaemia [Unknown]
  - Condition aggravated [Unknown]
  - Off label use [Unknown]
